FAERS Safety Report 5311451-5 (Version None)
Quarter: 2007Q2

REPORT INFORMATION
  Report Type: 
  Country: None (occurrence: None)
  Receive Date: 20070426
  Receipt Date: 20070426
  Transmission Date: 20071010
  Serious: Yes (Other)
  Sender: FDA-Public Use
  Company Number: None

PATIENT
  Age: 62 Year
  Sex: Male
  Weight: 95 kg

DRUGS (5)
  1. ZOCOR [Suspect]
  2. VARDENAFIL HCL [Concomitant]
  3. DILTIAZEM [Concomitant]
  4. CYCLOBENZAPRINE HCL [Concomitant]
  5. OMEPRAZOLE [Concomitant]

REACTIONS (1)
  - NASAL CONGESTION [None]
